FAERS Safety Report 8874021 (Version 2)
Quarter: 2012Q4

REPORT INFORMATION
  Report Type: 
  Country: US (occurrence: US)
  Receive Date: 20121030
  Receipt Date: 20121210
  Transmission Date: 20130627
  Serious: Yes (Other)
  Sender: FDA-Public Use
  Company Number: US-PFIZER INC-2012268612

PATIENT
  Age: 65 Year
  Sex: Female
  Weight: 62 kg

DRUGS (11)
  1. CHANTIX [Suspect]
     Indication: SMOKING CESSATION THERAPY
     Dosage: 0.5 mg, 1x/day
     Route: 048
     Dates: start: 201202, end: 2012
  2. VALIUM [Concomitant]
     Indication: MUSCLE SPASM
     Dosage: 10mg in the morning, 10-20mg in the afternoon, as needed
  3. VICODIN [Concomitant]
     Indication: PAIN
     Dosage: 5/500 mg, twice daily
  4. BENAZEPRIL [Concomitant]
     Indication: HYPERTENSION
     Dosage: 10 mg, 1x/day
     Dates: end: 201105
  5. BENAZEPRIL [Concomitant]
     Dosage: 40 mg, 1x/day
  6. SPIRIVA [Concomitant]
     Dosage: 18 ug, 1x/day
     Route: 055
  7. EFEXOR XR [Concomitant]
     Dosage: 75 mg, in the morning
  8. DRONABINOL [Concomitant]
     Dosage: 5 mg, UNK
  9. PROCHLORPERAZINE [Concomitant]
     Dosage: 10 mg, UNK
  10. OYSTER SHELL CALCIUM [Concomitant]
     Dosage: 500 mg, UNK
  11. FISH OIL [Concomitant]
     Dosage: UNK

REACTIONS (5)
  - Fall [Unknown]
  - Dizziness [Unknown]
  - Head injury [Unknown]
  - Lower limb fracture [Unknown]
  - Cardiac murmur [Unknown]
